FAERS Safety Report 8389072-X (Version None)
Quarter: 2012Q2

REPORT INFORMATION
  Report Type: 
  Country: None (occurrence: None)
  Receive Date: 20120528
  Receipt Date: 20120518
  Transmission Date: 20120825
  Serious: No
  Sender: FDA-Public Use
  Company Number: PHHY2011JP45385

PATIENT
  Sex: Female

DRUGS (4)
  1. TASIGNA [Suspect]
     Dosage: 200 MG DAILY
     Route: 048
     Dates: start: 20110228, end: 20110314
  2. TASIGNA [Suspect]
     Indication: CHRONIC MYELOID LEUKAEMIA
     Dosage: 800 MG DAILY
     Route: 048
     Dates: start: 20110121
  3. TASIGNA [Suspect]
     Dosage: 600 MG, DAILY
     Route: 048
     Dates: start: 20110426
  4. TASIGNA [Suspect]
     Dosage: 400 MG DAILY
     Route: 048
     Dates: start: 20110315, end: 20110425

REACTIONS (4)
  - ELECTROCARDIOGRAM ST SEGMENT DEPRESSION [None]
  - PALPITATIONS [None]
  - DYSPNOEA [None]
  - SINUS TACHYCARDIA [None]
